FAERS Safety Report 4636239-X (Version None)
Quarter: 2005Q2

REPORT INFORMATION
  Report Type: 
  Country: None (occurrence: None)
  Receive Date: 20050413
  Receipt Date: 20050413
  Transmission Date: 20051028
  Serious: No
  Sender: FDA-Public Use
  Company Number: None

PATIENT
  Sex: Male
  Weight: 116.1208 kg

DRUGS (3)
  1. COUMADIN [Suspect]
     Indication: ATRIAL FIBRILLATION
     Dosage: 5MG, 7.5MG   SAT. ALL OTHER     ORAL
     Route: 048
     Dates: start: 19951101, end: 20041121
  2. FRAGMIN [Suspect]
     Indication: ATRIAL FIBRILLATION
     Dosage: 10,000 UNITS    SUBCUTANEO
     Route: 058
     Dates: start: 20041112, end: 20041121
  3. FRAGMIN [Suspect]
     Indication: POST PROCEDURAL COMPLICATION
     Dosage: 10,000 UNITS    SUBCUTANEO
     Route: 058
     Dates: start: 20041112, end: 20041121

REACTIONS (3)
  - HAEMATURIA [None]
  - LIPOMA [None]
  - POST PROCEDURAL HAEMORRHAGE [None]
